FAERS Safety Report 4335495-5 (Version None)
Quarter: 2004Q2

REPORT INFORMATION
  Report Type: 
  Country: None (occurrence: None)
  Receive Date: 20040406
  Receipt Date: 20040325
  Transmission Date: 20050107
  Serious: Yes (Hospitalization, Disabling)
  Sender: FDA-Public Use
  Company Number: 2000-BP-01055

PATIENT
  Age: 43 Year
  Sex: Female
  Weight: 91.4 kg

DRUGS (6)
  1. VIRAMUNE [Suspect]
     Indication: PROPHYLAXIS AGAINST HIV INFECTION
     Dosage: 200 MG, (200 MG, 1 TABLET, QD), PO
     Route: 048
     Dates: start: 20000201, end: 20000221
  2. COMBIVIR [Concomitant]
  3. VERAPAMIL [Concomitant]
  4. CLAVITIN [Concomitant]
  5. CIPROFLOXACIN [Concomitant]
  6. CLARITIN D (LORATADINE) [Concomitant]

REACTIONS (7)
  - COMA HEPATIC [None]
  - DRUG HYPERSENSITIVITY [None]
  - HEPATIC FAILURE [None]
  - HEPATIC NECROSIS [None]
  - HEPATOTOXICITY [None]
  - LIVER TRANSPLANT [None]
  - REFUSAL OF TREATMENT BY PATIENT [None]
